FAERS Safety Report 17798823 (Version 1)
Quarter: 2020Q2

REPORT INFORMATION
  Report Type: Report from Study
  Country: AU (occurrence: AU)
  Receive Date: 20200518
  Receipt Date: 20200518
  Transmission Date: 20200714
  Serious: Yes (Hospitalization)
  Sender: FDA-Public Use
  Company Number: AU-JNJFOC-20171036170

PATIENT
  Age: 69 Year
  Sex: Female

DRUGS (1)
  1. SIMPONI [Suspect]
     Active Substance: GOLIMUMAB
     Indication: RHEUMATOID ARTHRITIS
     Route: 058
     Dates: start: 20171011

REACTIONS (4)
  - Pharyngitis [Recovering/Resolving]
  - Product use issue [Unknown]
  - Colonoscopy [Unknown]
  - Off label use [Unknown]

NARRATIVE: CASE EVENT DATE: 201710
